FAERS Safety Report 5044185-5 (Version None)
Quarter: 2006Q2

REPORT INFORMATION
  Report Type: 
  Country: None (occurrence: None)
  Receive Date: 20060629
  Receipt Date: 20060621
  Transmission Date: 20061013
  Serious: Yes (Life-Threatening)
  Sender: FDA-Public Use
  Company Number: 226540

PATIENT
  Age: 77 Year
  Sex: Male

DRUGS (2)
  1. RITUXAN [Suspect]
     Indication: LEUKAEMIA
  2. CYTOXAN [Suspect]
     Indication: LEUKAEMIA

REACTIONS (3)
  - ANAPHYLACTIC SHOCK [None]
  - BLOOD GLUCOSE INCREASED [None]
  - SKIN EXFOLIATION [None]
